FAERS Safety Report 4600638-2 (Version None)
Quarter: 2005Q1

REPORT INFORMATION
  Report Type: 
  Country: None (occurrence: None)
  Receive Date: 20050304
  Receipt Date: 20050216
  Transmission Date: 20050727
  Serious: Yes (Disabling, Other)
  Sender: FDA-Public Use
  Company Number: 2005038040

PATIENT
  Age: 62 Year
  Sex: Male

DRUGS (1)
  1. ALPROSTADIL [Suspect]
     Indication: ERECTILE DYSFUNCTION
     Dosage: 1000 MCG
     Dates: start: 20020101, end: 20050209

REACTIONS (1)
  - PENILE CELLULITIS [None]
